FAERS Safety Report 4667130-0 (Version None)
Quarter: 2005Q2

REPORT INFORMATION
  Report Type: 
  Country: None (occurrence: None)
  Receive Date: 20050520
  Receipt Date: 20040105
  Transmission Date: 20051028
  Serious: Yes (Disabling)
  Sender: FDA-Public Use
  Company Number: PHEH2004US00542

PATIENT
  Age: 76 Year
  Sex: Female

DRUGS (7)
  1. PANTOPRAZOLE SODIUM [Concomitant]
  2. DECADRON [Concomitant]
  3. EPOGEN [Concomitant]
  4. TIGAN [Concomitant]
  5. VICODIN [Concomitant]
  6. CHLORHEXIDINE [Concomitant]
  7. ZOMETA [Suspect]
     Indication: MULTIPLE MYELOMA
     Route: 042
     Dates: start: 20020301, end: 20031101

REACTIONS (1)
  - ASEPTIC NECROSIS BONE [None]
